FAERS Safety Report 9645645 (Version 2)
Quarter: 2013Q4

REPORT INFORMATION
  Report Type: Report from Study
  Country: JP (occurrence: JP)
  Receive Date: 20131025
  Receipt Date: 20131205
  Transmission Date: 20140711
  Serious: Yes (Other)
  Sender: FDA-Public Use
  Company Number: JP-TAKEDA-TCI2013A06258

PATIENT
  Age: 82 Year
  Sex: Male

DRUGS (7)
  1. LANSOPRAZOLE [Suspect]
     Indication: PROPHYLAXIS AGAINST GASTROINTESTINAL ULCER
     Dosage: 15 MG, QD
     Route: 048
     Dates: start: 20120824, end: 20130508
  2. BLOPRESS [Concomitant]
     Dosage: 8 MG,1 DAYS
     Route: 048
  3. BAYASPIRIN [Concomitant]
     Indication: THROMBOSIS PROPHYLAXIS
     Dosage: 100 MG, 1 DAYS
     Route: 048
  4. HERBESSER R [Concomitant]
     Dosage: 100 MG, 1 DAYS
     Route: 048
  5. NORVASC [Concomitant]
     Dosage: 5 MG, 1 DAYS
     Route: 048
  6. MAINTATE [Concomitant]
     Dosage: 5 MG, 1 DAYS
     Route: 048
  7. LIPITOR [Concomitant]
     Dosage: 5 MG, 1 DAYS
     Route: 048

REACTIONS (1)
  - Lung carcinoma cell type unspecified recurrent [Unknown]
